FAERS Safety Report 24568114 (Version 1)
Quarter: 2024Q4

REPORT INFORMATION
  Report Type: Spontaneous
  Country: ES (occurrence: ES)
  Receive Date: 20241031
  Receipt Date: 20241031
  Transmission Date: 20250114
  Serious: Yes (Hospitalization)
  Sender: AMGEN
  Company Number: ES-ROCHE-3358065

PATIENT
  Age: 46 Year
  Sex: Female
  Weight: 54 kg

DRUGS (5)
  1. BEVACIZUMAB [Suspect]
     Active Substance: BEVACIZUMAB
     Indication: Ovarian epithelial cancer
     Dosage: 1260 MILLIGRAM, Q3WK (START AND END DATE OF MOST RECENT DOSE (825 MG) OF STUDY DRUG PRIOR TO AE/SAE
     Route: 040
     Dates: start: 20220113
  2. ATEZOLIZUMAB [Suspect]
     Active Substance: ATEZOLIZUMAB
     Indication: Ovarian epithelial cancer
     Dosage: 1200 MILLIGRAM, Q3WK (START DATE OF MOST RECENT DOSE(1200MG) OF STUDY DRUG PRIOR TOAE/ SAE : 18/MAY/
     Route: 040
     Dates: start: 20220113
  3. LANSOPRAZOLE [Concomitant]
     Active Substance: LANSOPRAZOLE
     Indication: Gastritis
     Dosage: 30 MILLIGRAM, QD
     Route: 048
  4. OMEPRAZOLE [Concomitant]
     Active Substance: OMEPRAZOLE
     Indication: Gastritis
     Dosage: 20 MILLIGRAM, QD
     Route: 048
     Dates: start: 20220131
  5. Cidine [Concomitant]
     Indication: Gastroenteritis
     Dosage: 1 MILLIGRAM
     Route: 048
     Dates: start: 20220423

REACTIONS (1)
  - Ischaemic stroke [Recovered/Resolved]

NARRATIVE: CASE EVENT DATE: 20230524
